FAERS Safety Report 5701496-5 (Version None)
Quarter: 2008Q2

REPORT INFORMATION
  Report Type: 
  Country: None (occurrence: None)
  Receive Date: 20080407
  Receipt Date: 20080327
  Transmission Date: 20081010
  Serious: Yes (Hospitalization)
  Sender: FDA-Public Use
  Company Number: 2008AP000754

PATIENT
  Age: 59 Year
  Sex: Female

DRUGS (4)
  1. CARBAMAZEPINE [Suspect]
     Indication: NECK PAIN
  2. GABAPENTIN [Concomitant]
  3. MELOXICAM [Concomitant]
  4. CIMETIDINE [Concomitant]

REACTIONS (6)
  - DRUG RASH WITH EOSINOPHILIA AND SYSTEMIC SYMPTOMS [None]
  - EPSTEIN-BARR VIRUS INFECTION [None]
  - GALLBLADDER DISORDER [None]
  - HEPATITIS [None]
  - LYMPHADENOPATHY [None]
  - PROTEINURIA [None]
